FAERS Safety Report 20787617 (Version 1)
Quarter: 2022Q2

REPORT INFORMATION
  Report Type: Report from Study
  Country: IT (occurrence: IT)
  Receive Date: 20220505
  Receipt Date: 20220505
  Transmission Date: 20220721
  Serious: Yes (Hospitalization, Other)
  Sender: FDA-Public Use
  Company Number: IT-CELGENE-ITA-20200503996

PATIENT
  Age: 64 Year
  Sex: Male
  Weight: 80 kg

DRUGS (29)
  1. LENALIDOMIDE [Suspect]
     Active Substance: LENALIDOMIDE
     Indication: Plasma cell myeloma
     Dosage: FREQUENCY TEXT: NOT PROVIDED
     Route: 048
     Dates: start: 20190809, end: 20190926
  2. DEXAMETHASONE [Suspect]
     Active Substance: DEXAMETHASONE
     Indication: Plasma cell myeloma
     Dosage: FREQUENCY TEXT: NOT PROVIDED
     Route: 048
     Dates: start: 20190809, end: 20190917
  3. DEXAMETHASONE [Suspect]
     Active Substance: DEXAMETHASONE
     Dosage: FREQUENCY TEXT: NOT PROVIDED
     Route: 048
     Dates: start: 2019, end: 20191025
  4. LAMIVUDINE [Concomitant]
     Active Substance: LAMIVUDINE
     Indication: Prophylaxis
     Dosage: 100 MG
     Route: 048
  5. LAMIVUDINE [Concomitant]
     Active Substance: LAMIVUDINE
     Route: 048
     Dates: start: 20190815
  6. LANSOPRAZOLE [Concomitant]
     Active Substance: LANSOPRAZOLE
     Indication: Prophylaxis
     Dosage: DAILY
     Route: 048
  7. LANSOPRAZOLE [Concomitant]
     Active Substance: LANSOPRAZOLE
  8. LANSOPRAZOLE [Concomitant]
     Active Substance: LANSOPRAZOLE
     Dosage: 15 MILLIGRAM
     Route: 048
     Dates: start: 20190808
  9. TRAZODONE [Concomitant]
     Active Substance: TRAZODONE HYDROCHLORIDE
     Indication: Hypertension
     Dosage: 1 IN 1 D
     Route: 048
  10. TRAZODONE [Concomitant]
     Active Substance: TRAZODONE HYDROCHLORIDE
     Route: 048
     Dates: start: 20190808
  11. OMEPRAZOLE [Concomitant]
     Active Substance: OMEPRAZOLE
     Indication: Gastrointestinal disorder therapy
     Dosage: 1 VIAL
     Route: 042
     Dates: start: 20190810
  12. OMEPRAZOLE [Concomitant]
     Active Substance: OMEPRAZOLE
     Indication: Prophylaxis
     Route: 042
     Dates: start: 20190929, end: 20191004
  13. OMEPRAZOLE [Concomitant]
     Active Substance: OMEPRAZOLE
     Route: 042
     Dates: start: 20191010, end: 20191014
  14. ASPIRIN [Concomitant]
     Active Substance: ASPIRIN
     Indication: Prophylaxis
     Dosage: DAILY
  15. ASPIRIN [Concomitant]
     Active Substance: ASPIRIN
     Indication: Gastritis prophylaxis
     Dosage: DAILY
  16. ASPIRIN [Concomitant]
     Active Substance: ASPIRIN
     Indication: Thrombosis prophylaxis
     Dosage: 40 MG,DAILY
     Dates: start: 20191010, end: 20191014
  17. ASPIRIN [Concomitant]
     Active Substance: ASPIRIN
     Dosage: 100 MILLIGRAM
     Route: 048
     Dates: start: 20190810
  18. LASIX [Concomitant]
     Active Substance: FUROSEMIDE
     Indication: Thrombosis prophylaxis
     Dosage: DAILY
     Route: 048
  19. LASIX [Concomitant]
     Active Substance: FUROSEMIDE
  20. BORTEZOMIB [Concomitant]
     Active Substance: BORTEZOMIB
     Indication: Plasma cell myeloma
     Dosage: FREQUENCY TEXT: NOT PROVIDED
     Route: 058
     Dates: start: 20190809, end: 20190916
  21. BORTEZOMIB [Concomitant]
     Active Substance: BORTEZOMIB
     Dosage: FREQUENCY TEXT: NOT PROVIDED
     Route: 058
     Dates: start: 2019, end: 20191024
  22. BORTEZOMIB [Concomitant]
     Active Substance: BORTEZOMIB
     Dosage: FREQUENCY TEXT: NOT PROVIDED
     Route: 058
     Dates: start: 201910, end: 20191025
  23. ALLOPURINOL [Concomitant]
     Active Substance: ALLOPURINOL
     Indication: Prophylaxis
     Dosage: 300 MILLIGRAM
     Route: 048
     Dates: start: 20190808
  24. ACYCLOVIR [Concomitant]
     Active Substance: ACYCLOVIR
     Indication: Antiviral prophylaxis
     Dosage: 400 MILLIGRAM
     Route: 048
     Dates: start: 20190809
  25. ZOMETA [Concomitant]
     Active Substance: ZOLEDRONIC ACID
     Indication: Anaemia
     Dosage: 4 MILLIGRAM
     Route: 042
     Dates: start: 20190809
  26. CEFTAZIDIME [Concomitant]
     Active Substance: CEFTAZIDIME
     Indication: Cough
     Dosage: 2 GRAM
     Route: 042
     Dates: start: 20191009, end: 20191014
  27. FENTANYL [Concomitant]
     Active Substance: FENTANYL
     Indication: Bone pain
     Route: 062
     Dates: start: 20190808
  28. NEO LOTAN [Concomitant]
     Indication: Hypertension
     Dosage: 1 CAPUSLE
     Route: 048
  29. ANTARA [Concomitant]
     Active Substance: FENOFIBRATE
     Indication: Gastrointestinal disorder therapy
     Route: 042
     Dates: start: 20190929, end: 20191004

REACTIONS (4)
  - Deep vein thrombosis [Recovered/Resolved with Sequelae]
  - Bone pain [Recovered/Resolved with Sequelae]
  - Pyrexia [Recovered/Resolved]
  - Erysipelas [Recovered/Resolved with Sequelae]

NARRATIVE: CASE EVENT DATE: 20190928
